FAERS Safety Report 20775824 (Version 1)
Quarter: 2022Q2

REPORT INFORMATION
  Report Type: Spontaneous
  Country: SI (occurrence: SI)
  Receive Date: 20220502
  Receipt Date: 20220502
  Transmission Date: 20220720
  Serious: Yes (Other)
  Sender: FDA-Public Use
  Company Number: SI-NOVARTISPH-NVSC2022SI096308

PATIENT
  Age: 68 Year
  Sex: Female

DRUGS (6)
  1. AFINITOR [Suspect]
     Active Substance: EVEROLIMUS
     Indication: Invasive lobular breast carcinoma
     Dosage: 5 MG
     Route: 048
     Dates: start: 202110
  2. AFINITOR [Suspect]
     Active Substance: EVEROLIMUS
     Dosage: 10 MG
     Route: 048
     Dates: end: 202112
  3. AFINITOR [Suspect]
     Active Substance: EVEROLIMUS
     Dosage: 5 MG
     Route: 048
     Dates: start: 202201, end: 202202
  4. FULVESTRANT [Suspect]
     Active Substance: FULVESTRANT
     Indication: Invasive lobular breast carcinoma
     Dosage: 500 MG
     Route: 030
     Dates: start: 202110, end: 202202
  5. FULVESTRANT [Suspect]
     Active Substance: FULVESTRANT
     Dosage: UNK
     Route: 065
     Dates: start: 202202
  6. DENOSUMAB [Concomitant]
     Active Substance: DENOSUMAB
     Indication: Product used for unknown indication
     Dosage: 120 MG (28 DAYS)
     Route: 058
     Dates: start: 201802, end: 202002

REACTIONS (2)
  - Anaemia [Recovering/Resolving]
  - Diarrhoea [Unknown]

NARRATIVE: CASE EVENT DATE: 20211001
